FAERS Safety Report 9705050 (Version 1)
Quarter: 2013Q4

REPORT INFORMATION
  Report Type: Report from Study
  Country: US (occurrence: US)
  Receive Date: 20131122
  Receipt Date: 20131122
  Transmission Date: 20140711
  Serious: Yes (Other)
  Sender: FDA-Public Use
  Company Number: US-ABBVIE-13P-163-1169432-00

PATIENT
  Age: 3 Year
  Sex: Female

DRUGS (2)
  1. HUMIRA [Suspect]
     Indication: CROHN^S DISEASE
     Route: 058
     Dates: start: 20130910, end: 20131010
  2. HUMIRA [Suspect]
     Route: 058
     Dates: start: 20131110

REACTIONS (2)
  - Ileostomy [Unknown]
  - Haematochezia [Unknown]
